FAERS Safety Report 12142987 (Version 1)
Quarter: 2016Q1

REPORT INFORMATION
  Report Type: Spontaneous
  Country: FR (occurrence: FR)
  Receive Date: 20160303
  Receipt Date: 20160303
  Transmission Date: 20160526
  Serious: Yes (Hospitalization)
  Sender: FDA-Public Use
  Company Number: FR-TEIKOKU PHARMA USA-TPU2016-00122

PATIENT
  Age: 89 Year
  Sex: Female

DRUGS (2)
  1. PROFENID [Concomitant]
     Active Substance: KETOPROFEN
     Dates: start: 20151126, end: 20151130
  2. VERSATIS [Suspect]
     Active Substance: LIDOCAINE
     Indication: PAIN
     Route: 061
     Dates: start: 20151126, end: 20151217

REACTIONS (4)
  - Eosinophilia [Recovered/Resolved]
  - Urticaria [Recovered/Resolved]
  - Pyrexia [Recovered/Resolved]
  - Rash [Recovered/Resolved]

NARRATIVE: CASE EVENT DATE: 20151229
